FAERS Safety Report 9988877 (Version 2)
Quarter: 2014Q1

REPORT INFORMATION
  Report Type: Report from Study
  Country: US (occurrence: US)
  Receive Date: 20140310
  Receipt Date: 20140310
  Transmission Date: 20141002
  Serious: No
  Sender: FDA-Public Use
  Company Number: US-ABBVIE-13P-163-1075334-00

PATIENT
  Age: 30 Year
  Sex: Female

DRUGS (6)
  1. HUMIRA [Suspect]
     Indication: CROHN^S DISEASE
     Route: 058
     Dates: start: 20130409, end: 20130409
  2. HUMIRA [Suspect]
     Dosage: LOADING DOSE
     Dates: start: 20130423
  3. HUMIRA [Suspect]
  4. VITAMIN D NOS [Concomitant]
     Indication: VITAMIN D DECREASED
     Dates: start: 20130410
  5. VITAMIN D NOS [Concomitant]
     Indication: VITAMIN D DECREASED
     Dates: start: 20130410
  6. TRI-SPRINTEC BIRTH CONTROL [Concomitant]
     Indication: CONTRACEPTION

REACTIONS (7)
  - Urticaria [Recovered/Resolved]
  - Injection site pain [Recovered/Resolved]
  - Injection site erythema [Recovered/Resolved]
  - Injection site pain [Recovered/Resolved]
  - Injection site erythema [Recovered/Resolved]
  - Injection site swelling [Recovered/Resolved]
  - Injection site bruising [Recovered/Resolved]
